FAERS Safety Report 13013063 (Version 3)
Quarter: 2017Q1

REPORT INFORMATION
  Report Type: Spontaneous
  Country: FR (occurrence: FR)
  Receive Date: 20161209
  Receipt Date: 20170110
  Transmission Date: 20170428
  Serious: Yes (Other)
  Sender: FDA-Public Use
  Company Number: FR-PFIZER INC-2016562701

PATIENT
  Sex: Male

DRUGS (1)
  1. FLUCONAZOLE. [Suspect]
     Active Substance: FLUCONAZOLE
     Indication: CANDIDA INFECTION
     Dosage: 1 DF, DAILY

REACTIONS (5)
  - Hypothermia [Unknown]
  - Somnolence [Recovered/Resolved]
  - Vertigo [Recovered/Resolved]
  - Hepatic pain [Recovering/Resolving]
  - Hypertension [Unknown]
